FAERS Safety Report 6511090-4 (Version None)
Quarter: 2009Q4

REPORT INFORMATION
  Report Type: 
  Country: None (occurrence: None)
  Receive Date: 20091222
  Receipt Date: 20090224
  Transmission Date: 20100525
  Serious: No
  Sender: FDA-Public Use
  Company Number: US-ASTRAZENECA-2009UW05118

PATIENT
  Sex: Female

DRUGS (4)
  1. CRESTOR [Suspect]
     Dosage: UNKNOWN
     Route: 048
  2. CELEBREX [Suspect]
     Dosage: UNKNOWN
     Route: 065
  3. CELEBREX [Suspect]
     Dosage: UNKNOWN
     Route: 065
  4. AMBIEN [Suspect]
     Dosage: UNKNOWN
     Route: 065

REACTIONS (1)
  - ADVERSE DRUG REACTION [None]
